FAERS Safety Report 24970252 (Version 2)
Quarter: 2025Q1

REPORT INFORMATION
  Report Type: Spontaneous
  Country: US (occurrence: US)
  Receive Date: 20250214
  Receipt Date: 20250328
  Transmission Date: 20250409
  Serious: No
  Sender: LUPIN
  Company Number: US-LUPIN PHARMACEUTICALS INC.-2025-00376

PATIENT

DRUGS (2)
  1. CEFDINIR [Suspect]
     Active Substance: CEFDINIR
     Indication: Urinary tract infection
     Dosage: 2 DOSAGE FORM, QD
     Route: 065
  2. CEFDINIR [Suspect]
     Active Substance: CEFDINIR
     Dosage: 1 DOSAGE FORM, QD
     Route: 065

REACTIONS (4)
  - Hypersensitivity [Unknown]
  - Trichoglossia [Unknown]
  - Malaise [Unknown]
  - Off label use [Unknown]
